FAERS Safety Report 7581418-5 (Version None)
Quarter: 2011Q2

REPORT INFORMATION
  Report Type: 
  Country: None (occurrence: None)
  Receive Date: 20110629
  Receipt Date: 20110614
  Transmission Date: 20111010
  Serious: Yes (Other)
  Sender: FDA-Public Use
  Company Number: PHHY2011FR53332

PATIENT
  Age: 68 Year
  Sex: Male

DRUGS (4)
  1. ASPIRIN [Concomitant]
  2. SANDOSTATIN LAR [Suspect]
     Indication: NODULE
  3. DILTIAZEM HCL [Concomitant]
  4. PROSCAR [Concomitant]

REACTIONS (1)
  - HYDROCELE [None]
